FAERS Safety Report 9365097 (Version 1)
Quarter: 2013Q2

REPORT INFORMATION
  Report Type: Spontaneous
  Country: US (occurrence: US)
  Receive Date: 20130624
  Receipt Date: 20130624
  Transmission Date: 20140414
  Serious: Yes (Other)
  Sender: FDA-Public Use
  Company Number: US-US-EMD SERONO, INC.-231008J10USA

PATIENT
  Age: 49 Year
  Sex: Female

DRUGS (3)
  1. REBIF [Suspect]
     Indication: MULTIPLE SCLEROSIS
     Route: 058
     Dates: end: 200911
  2. REBIF [Suspect]
     Route: 058
     Dates: start: 20110616
  3. LEVOXYL [Concomitant]
     Indication: THYROID DISORDER

REACTIONS (8)
  - Oesophageal mass [Not Recovered/Not Resolved]
  - Pulmonary mass [Not Recovered/Not Resolved]
  - Ligament rupture [Not Recovered/Not Resolved]
  - Hypertension [Unknown]
  - Lymphoedema [Not Recovered/Not Resolved]
  - Fall [Unknown]
  - Multiple sclerosis relapse [Recovering/Resolving]
  - Thyroid function test abnormal [Not Recovered/Not Resolved]
